FAERS Safety Report 4975920-X (Version None)
Quarter: 2006Q2

REPORT INFORMATION
  Report Type: 
  Country: None (occurrence: None)
  Receive Date: 20060405
  Receipt Date: 20060330
  Transmission Date: 20061013
  Serious: Yes (Hospitalization)
  Sender: FDA-Public Use
  Company Number: 200609944

PATIENT
  Age: 66 Year
  Sex: Female
  Weight: 53 kg

DRUGS (4)
  1. SANDOGLOBULINE (IMMUNOGLOBULINE HUMAN NORMAL)  (ZLB BEHRING) [Suspect]
     Indication: POLYMYOSITIS
     Dosage: 48 G DAILY; IV
     Route: 042
     Dates: start: 20060210, end: 20060211
  2. SANDOGLOBULINE (IMMUNOGLOBULINE HUMAN NORMAL)  (ZLB BEHRING) [Suspect]
     Dosage: 6 G DAILY; IV
     Route: 042
     Dates: start: 20060210, end: 20060211
  3. SANDOGLOBULINE (IMMUNOGLOBULINE HUMAN NORMAL)  (ZLB BEHRING) [Suspect]
     Dosage: 6 G DAILY; IV
     Route: 042
     Dates: start: 20060309
  4. MOPRAL [Concomitant]

REACTIONS (2)
  - AGRANULOCYTOSIS [None]
  - THROMBOCYTOPENIA [None]
